FAERS Safety Report 19598074 (Version 1)
Quarter: 2021Q3

REPORT INFORMATION
  Report Type: Spontaneous
  Country: US (occurrence: US)
  Receive Date: 20210722
  Receipt Date: 20210722
  Transmission Date: 20211014
  Serious: No
  Sender: FDA-Public Use
  Company Number: None

PATIENT
  Age: 75 Year
  Sex: Male

DRUGS (2)
  1. MELOXICAM (MELOXICAM 15MG TAB) [Suspect]
     Active Substance: MELOXICAM
     Indication: PAIN
     Route: 048
     Dates: start: 20210326, end: 20210411
  2. ASPIRIN (ASPIRIN 81MG TAB, EC) [Suspect]
     Active Substance: ASPIRIN
     Indication: PAIN
     Route: 048
     Dates: start: 20210326, end: 20210413

REACTIONS (2)
  - Large intestinal ulcer [None]
  - Gastric haemorrhage [None]

NARRATIVE: CASE EVENT DATE: 20210411
